FAERS Safety Report 4831867-0 (Version None)
Quarter: 2005Q4

REPORT INFORMATION
  Report Type: 
  Country: None (occurrence: None)
  Receive Date: 20051118
  Receipt Date: 20041027
  Transmission Date: 20060501
  Serious: Yes (Disabling)
  Sender: FDA-Public Use
  Company Number: US-ROCHE-384683

PATIENT
  Age: 14 Year
  Sex: Female
  Weight: 47.6 kg

DRUGS (1)
  1. ACCUTANE [Suspect]
     Indication: ACNE
     Route: 048
     Dates: start: 19930129, end: 19930715

REACTIONS (39)
  - ANAEMIA [None]
  - CAESAREAN SECTION [None]
  - CELLULITIS [None]
  - COLITIS [None]
  - COLITIS ULCERATIVE [None]
  - CYSTITIS [None]
  - DRUG EXPOSURE BEFORE PREGNANCY [None]
  - DRY SKIN [None]
  - EAR INFECTION [None]
  - GASTROINTESTINAL DISORDER [None]
  - GASTROOESOPHAGEAL REFLUX DISEASE [None]
  - HEADACHE [None]
  - HUNGER [None]
  - HYPOGLYCAEMIA [None]
  - INFLAMMATORY BOWEL DISEASE [None]
  - INSOMNIA [None]
  - INTESTINAL HAEMORRHAGE [None]
  - KIDNEY INFECTION [None]
  - LIP DRY [None]
  - MULTI-ORGAN DISORDER [None]
  - NIGHT BLINDNESS [None]
  - OESOPHAGEAL DISORDER [None]
  - ONYCHOMYCOSIS [None]
  - ORGAN FAILURE [None]
  - OSTEOARTHRITIS [None]
  - OTITIS EXTERNA [None]
  - POLLAKIURIA [None]
  - POLYARTHRITIS [None]
  - PREGNANCY [None]
  - RAYNAUD'S PHENOMENON [None]
  - RECTAL HAEMORRHAGE [None]
  - ROAD TRAFFIC ACCIDENT [None]
  - SIGMOIDITIS [None]
  - SINUSITIS [None]
  - THERAPY NON-RESPONDER [None]
  - THIRST [None]
  - UPPER RESPIRATORY TRACT INFECTION [None]
  - VISION BLURRED [None]
  - VISUAL DISTURBANCE [None]
